FAERS Safety Report 7129502-4 (Version None)
Quarter: 2010Q4

REPORT INFORMATION
  Report Type: 
  Country: None (occurrence: None)
  Receive Date: 20101130
  Receipt Date: 20101119
  Transmission Date: 20110411
  Serious: Yes (Other)
  Sender: FDA-Public Use
  Company Number: US-AMGEN-USASP2010005895

PATIENT

DRUGS (4)
  1. NPLATE [Suspect]
     Indication: IDIOPATHIC THROMBOCYTOPENIC PURPURA
     Dates: start: 20091211, end: 20100217
  2. CORTICOSTEROIDS [Concomitant]
  3. IMMUNE GLOBULIN NOS [Concomitant]
  4. RITUXIMAB [Concomitant]

REACTIONS (1)
  - LIVER FUNCTION TEST ABNORMAL [None]
